FAERS Safety Report 23424053 (Version 1)
Quarter: 2024Q1

REPORT INFORMATION
  Report Type: Spontaneous
  Country: US (occurrence: US)
  Receive Date: 20240120
  Receipt Date: 20240120
  Transmission Date: 20240410
  Serious: No
  Sender: FDA-Public Use
  Company Number: US-ABBVIE-5585860

PATIENT
  Sex: Female

DRUGS (1)
  1. RINVOQ [Suspect]
     Active Substance: UPADACITINIB
     Indication: Product used for unknown indication
     Route: 048

REACTIONS (11)
  - Fatigue [Unknown]
  - Skin warm [Unknown]
  - Therapeutic product effect decreased [Unknown]
  - Inflammation [Unknown]
  - Pain [Unknown]
  - Joint lock [Unknown]
  - Vasodilatation [Unknown]
  - Pain [Unknown]
  - Intervertebral disc degeneration [Unknown]
  - Confusional state [Unknown]
  - Mobility decreased [Unknown]
